FAERS Safety Report 8237882-1 (Version None)
Quarter: 2012Q1

REPORT INFORMATION
  Report Type: 
  Country: None (occurrence: None)
  Receive Date: 20120323
  Receipt Date: 20120309
  Transmission Date: 20120608
  Serious: Yes (Hospitalization)
  Sender: FDA-Public Use
  Company Number: 2012SP013295

PATIENT
  Age: 58 Year
  Sex: Female

DRUGS (8)
  1. FLUOXETINE [Concomitant]
  2. PANTOPRAZOLE [Concomitant]
  3. VICTRELIS [Suspect]
     Indication: HEPATITIS C
     Dosage: 2400 MG, QD,
     Dates: start: 20111212
  4. VICTRELIS [Suspect]
     Indication: VIRAL INFECTION
     Dosage: 2400 MG, QD,
     Dates: start: 20111212
  5. METOCLOPRAMIDE [Concomitant]
  6. REBETOL [Suspect]
     Indication: HEPATITIS C
     Dosage: 1200 MG, QD
     Dates: start: 20111107
  7. REBETOL [Suspect]
     Indication: VIRAL INFECTION
     Dosage: 1200 MG, QD
     Dates: start: 20111107
  8. DOXEPIN HCL [Concomitant]

REACTIONS (6)
  - VOMITING [None]
  - EATING DISORDER [None]
  - ANAEMIA [None]
  - PNEUMONIA [None]
  - NAUSEA [None]
  - URINARY TRACT INFECTION [None]
